FAERS Safety Report 4587363-1 (Version None)
Quarter: 2005Q1

REPORT INFORMATION
  Report Type: 
  Country: None (occurrence: None)
  Receive Date: 20050216
  Receipt Date: 20050203
  Transmission Date: 20050727
  Serious: Yes (Other)
  Sender: FDA-Public Use
  Company Number: US-JNJFOC-20041105411

PATIENT
  Sex: Female
  Weight: 55.79 kg

DRUGS (17)
  1. REMICADE [Suspect]
     Route: 042
  2. REMICADE [Suspect]
     Indication: RHEUMATOID ARTHRITIS
     Route: 042
  3. AMBIEN [Concomitant]
     Dosage: AT BEDTIME
     Route: 049
  4. ATROVENT [Concomitant]
     Dosage: 2 PUFFS
  5. COUMADIN [Concomitant]
  6. DIGITEK [Concomitant]
  7. FOLIC ACID [Concomitant]
  8. HYDROXYZINE [Concomitant]
  9. LASIX [Concomitant]
  10. LOTRISONE [Concomitant]
  11. LOTRISONE [Concomitant]
  12. METHOTREXATE [Concomitant]
  13. PAXIL [Concomitant]
  14. PHENERGAN [Concomitant]
  15. PREDNISONE [Concomitant]
  16. PROTONIX [Concomitant]
  17. REGLAN [Concomitant]

REACTIONS (9)
  - ARTHRITIS [None]
  - ATRIAL FIBRILLATION [None]
  - B-CELL LYMPHOMA [None]
  - CONDITION AGGRAVATED [None]
  - EPISTAXIS [None]
  - INTERNATIONAL NORMALISED RATIO INCREASED [None]
  - MYOCARDIAL INFARCTION [None]
  - PROTHROMBIN TIME SHORTENED [None]
  - PRURITUS [None]
